FAERS Safety Report 10224590 (Version 3)
Quarter: 2014Q2

REPORT INFORMATION
  Report Type: Spontaneous
  Country: JP (occurrence: JP)
  Receive Date: 20140609
  Receipt Date: 20140619
  Transmission Date: 20141212
  Serious: Yes (Hospitalization)
  Sender: FDA-Public Use
  Company Number: JP-ELI_LILLY_AND_COMPANY-JP201403001983

PATIENT
  Age: 57 Year
  Sex: Male
  Weight: 63 kg

DRUGS (13)
  1. ALIMTA [Suspect]
     Indication: LUNG ADENOCARCINOMA STAGE IV
     Dosage: 704 MG, OTHER
     Route: 042
     Dates: start: 20110421, end: 20110719
  2. ALIMTA [Suspect]
     Dosage: 700 MG, OTHER
     Route: 042
     Dates: start: 20110830, end: 20110920
  3. AVASTIN [Suspect]
     Indication: LUNG ADENOCARCINOMA STAGE IV
     Dosage: 982.5 MG, OTHER
     Route: 042
     Dates: start: 20110421, end: 20110628
  4. CARBOPLATIN [Concomitant]
     Indication: LUNG ADENOCARCINOMA STAGE IV
     Dosage: 444.5 MG, OTHER
     Dates: start: 20110421, end: 20110719
  5. KYTRIL [Concomitant]
     Indication: PROPHYLAXIS
     Dosage: 3 MG, QD
     Route: 042
     Dates: start: 20110719, end: 20110719
  6. DEXAMETHASONE SODIUM PHOSPHATE [Concomitant]
     Indication: PROPHYLAXIS
     Dosage: 8 MG, QD
     Route: 042
     Dates: start: 20110719, end: 20110719
  7. CALONAL [Concomitant]
     Indication: ANALGESIC THERAPY
     Dosage: 600 MG, OTHER
     Route: 048
     Dates: start: 20110721, end: 20110725
  8. EMEND [Concomitant]
     Indication: PROPHYLAXIS
     Dosage: 80 MG, QD
     Dates: start: 20110719
  9. EMEND [Concomitant]
     Dosage: 125 MG, QD
     Dates: end: 20110721
  10. NASEA [Concomitant]
     Indication: PROPHYLAXIS
     Dosage: 0.1 MG, UNK
     Route: 048
     Dates: start: 20110719, end: 20110723
  11. PRIMPERAN [Concomitant]
     Indication: PROPHYLAXIS
     Dosage: 5 MG, QD
     Route: 048
     Dates: start: 20110719, end: 20110725
  12. PANVITAN                           /00466101/ [Concomitant]
     Indication: PROPHYLAXIS
     Dosage: 1 MG, QD
     Route: 048
     Dates: start: 20110414, end: 20110614
  13. COBAMAMIDE [Concomitant]
     Indication: PROPHYLAXIS
     Dosage: 1 G, QD
     Route: 030
     Dates: start: 20110414, end: 20110726

REACTIONS (3)
  - Deep vein thrombosis [Recovered/Resolved]
  - Pulmonary embolism [Recovered/Resolved]
  - Proteinuria [Recovered/Resolved]
